FAERS Safety Report 9170084 (Version 1)
Quarter: 2013Q1

REPORT INFORMATION
  Report Type: Spontaneous
  Country: US (occurrence: None)
  Receive Date: 20130308
  Receipt Date: 20130308
  Transmission Date: 20140127
  Serious: Yes (Life-Threatening, Other)
  Sender: FDA-Public Use
  Company Number: 001486877A

PATIENT
  Age: 22 Year
  Sex: Female

DRUGS (1)
  1. PROACTIV REFINING MASK [Suspect]
     Indication: ACNE
     Route: 061
     Dates: start: 20130211, end: 20130213

REACTIONS (4)
  - Swelling face [None]
  - Dyspnoea [None]
  - Erythema [None]
  - Gastrointestinal disorder [None]
